FAERS Safety Report 18315687 (Version 1)
Quarter: 2020Q3

REPORT INFORMATION
  Report Type: Spontaneous
  Country: DE (occurrence: DE)
  Receive Date: 20200926
  Receipt Date: 20200926
  Transmission Date: 20201103
  Serious: Yes (Hospitalization)
  Sender: FDA-Public Use
  Company Number: DE-TEVA-2020-DE-1830678

PATIENT
  Age: 35 Year
  Sex: Male
  Weight: 103 kg

DRUGS (5)
  1. PANTOPRAZOL [Concomitant]
     Active Substance: PANTOPRAZOLE SODIUM
     Dosage: 40 MILLIGRAM DAILY;  1?0?0?0
  2. DICLOFENAC [Suspect]
     Active Substance: DICLOFENAC
     Dosage: 75 MILLIGRAM DAILY; 1?1?1?0
     Route: 065
  3. COLECALCIFEROL (VITAMIN D) [Concomitant]
     Dosage: NK IE, NK
  4. PREDNISOLON [Suspect]
     Active Substance: PREDNISOLONE
     Dosage: 80 MILLIGRAM DAILY;
     Route: 065
     Dates: start: 20200725
  5. FOLSAURE [Concomitant]
     Active Substance: FOLIC ACID
     Dosage: NK MG, NK

REACTIONS (5)
  - Chills [Unknown]
  - Flatulence [Unknown]
  - Vomiting [Unknown]
  - Abdominal pain upper [Unknown]
  - Abdominal pain [Unknown]
